FAERS Safety Report 4418057-0 (Version None)
Quarter: 2004Q3

REPORT INFORMATION
  Report Type: 
  Country: None (occurrence: None)
  Receive Date: 20040803
  Receipt Date: 20040719
  Transmission Date: 20050211
  Serious: Yes (Hospitalization, Disabling, Other)
  Sender: FDA-Public Use
  Company Number: 2004-0007244

PATIENT
  Age: 27 Year
  Sex: Female
  Weight: 70.5 kg

DRUGS (5)
  1. VIREAD [Suspect]
     Indication: HIV INFECTION
     Dosage: 300 MG, 1 IN 1 D, ORAL
     Route: 048
     Dates: start: 20020415, end: 20030904
  2. DDI (ENTERIC COATED) (DIDANOSINE) [Concomitant]
  3. KALETRA [Concomitant]
  4. AMITRIPTYLINE HCL [Concomitant]
  5. BACTRIM [Concomitant]

REACTIONS (6)
  - BLOOD PHOSPHORUS DECREASED [None]
  - DIABETES INSIPIDUS [None]
  - FANCONI SYNDROME ACQUIRED [None]
  - HEADACHE [None]
  - NAUSEA [None]
  - RENAL TUBULAR DISORDER [None]
